FAERS Safety Report 6524436-8 (Version None)
Quarter: 2010Q1

REPORT INFORMATION
  Report Type: 
  Country: None (occurrence: None)
  Receive Date: 20100104
  Receipt Date: 20091222
  Transmission Date: 20100710
  Serious: Yes (Hospitalization, Other)
  Sender: FDA-Public Use
  Company Number: GB-RANBAXY-2009RR-30172

PATIENT
  Age: 68 Year
  Sex: Male
  Weight: 75 kg

DRUGS (9)
  1. SIMVASTATIN [Suspect]
     Dosage: 40 MG, QD
  2. LIPITOR [Suspect]
     Dosage: 80 MG, QD
  3. LIPITOR [Suspect]
     Dosage: 40 MG, QD
  4. LIPITOR [Suspect]
     Dosage: 20 MG, QD
  5. ACETYLSALICYLIC ACID [Concomitant]
     Dosage: 75 MG, QD
     Route: 048
  6. AMLODIPINE [Concomitant]
     Dosage: 5 MG, QD
     Route: 048
  7. ATENOLOL [Concomitant]
     Dosage: 50 MG, QD
     Route: 048
  8. GLUCOPHAGE SR [Concomitant]
     Dosage: 1000 MG, QD
     Route: 048
  9. LISINOPRIL [Concomitant]
     Dosage: 20 MG, QD
     Route: 048

REACTIONS (3)
  - ANGIOPLASTY [None]
  - CORONARY ARTERY BYPASS [None]
  - MYALGIA [None]
